FAERS Safety Report 18350289 (Version 2)
Quarter: 2020Q4

REPORT INFORMATION
  Report Type: Spontaneous
  Country: US (occurrence: US)
  Receive Date: 20201006
  Receipt Date: 20201016
  Transmission Date: 20210114
  Serious: Yes (Hospitalization, Other)
  Sender: FDA-Public Use
  Company Number: US-ASTRAZENECA-2020SF27095

PATIENT
  Age: 18892 Day
  Sex: Male
  Weight: 117.9 kg

DRUGS (31)
  1. POTASSIUM CHLORIDE. [Concomitant]
     Active Substance: POTASSIUM CHLORIDE
  2. LOSARTAN. [Concomitant]
     Active Substance: LOSARTAN
  3. VITAMIN B12 [Concomitant]
     Active Substance: CYANOCOBALAMIN
  4. FARXIGA [Suspect]
     Active Substance: DAPAGLIFLOZIN PROPANEDIOL
     Indication: BLOOD PRESSURE DECREASED
     Dosage: GENERIC
     Route: 048
     Dates: start: 20180823
  5. AMARYL [Concomitant]
     Active Substance: GLIMEPIRIDE
     Dates: start: 20180214
  6. FLORASTOR [Concomitant]
     Active Substance: SACCHAROMYCES CEREVISIAE
  7. ULTRAM [Concomitant]
     Active Substance: TRAMADOL HYDROCHLORIDE
  8. HUMALOG [Concomitant]
     Active Substance: INSULIN LISPRO
  9. DEXILANT [Concomitant]
     Active Substance: DEXLANSOPRAZOLE
     Dates: start: 20160804
  10. MEDROL [Concomitant]
     Active Substance: METHYLPREDNISOLONE
     Dates: start: 20170808
  11. LOPRESSOR [Concomitant]
     Active Substance: METOPROLOL TARTRATE
     Dates: start: 20171018
  12. SODIUM HYPOCHLORITE [Concomitant]
     Active Substance: SODIUM HYPOCHLORITE
  13. LANTUS [Concomitant]
     Active Substance: INSULIN GLARGINE
  14. ZOLOFT [Concomitant]
     Active Substance: SERTRALINE HYDROCHLORIDE
  15. ASPIRIN. [Concomitant]
     Active Substance: ASPIRIN
  16. ARICEPT [Concomitant]
     Active Substance: DONEPEZIL HYDROCHLORIDE
     Dates: start: 20170303
  17. LEXAPRO [Concomitant]
     Active Substance: ESCITALOPRAM OXALATE
  18. CLONIDINE. [Concomitant]
     Active Substance: CLONIDINE
     Dates: start: 20171018
  19. LEXAPRO [Concomitant]
     Active Substance: ESCITALOPRAM OXALATE
     Dates: start: 20171107
  20. LONITEN [Concomitant]
     Active Substance: MINOXIDIL
     Dates: start: 20171018
  21. CRESTOR [Concomitant]
     Active Substance: ROSUVASTATIN CALCIUM
     Dates: start: 20171018
  22. PEPCID [Concomitant]
     Active Substance: FAMOTIDINE
  23. FARXIGA [Suspect]
     Active Substance: DAPAGLIFLOZIN PROPANEDIOL
     Indication: TYPE 2 DIABETES MELLITUS
     Dosage: GENERIC
     Route: 048
     Dates: start: 20180823
  24. ALBUTEROL. [Concomitant]
     Active Substance: ALBUTEROL
     Dates: start: 20090301
  25. HYZAAR [Concomitant]
     Active Substance: HYDROCHLOROTHIAZIDE\LOSARTAN POTASSIUM
     Dates: start: 20170303
  26. JANUMET [Concomitant]
     Active Substance: METFORMIN HYDROCHLORIDE\SITAGLIPTIN PHOSPHATE
     Dates: start: 20180803
  27. MINOXIDIL. [Concomitant]
     Active Substance: MINOXIDIL
  28. FARXIGA [Suspect]
     Active Substance: DAPAGLIFLOZIN PROPANEDIOL
     Indication: TYPE 2 DIABETES MELLITUS
     Route: 048
     Dates: start: 201808, end: 201809
  29. FARXIGA [Suspect]
     Active Substance: DAPAGLIFLOZIN PROPANEDIOL
     Indication: WEIGHT DECREASED
     Route: 048
     Dates: start: 201808, end: 201809
  30. FARXIGA [Suspect]
     Active Substance: DAPAGLIFLOZIN PROPANEDIOL
     Indication: BLOOD PRESSURE DECREASED
     Route: 048
     Dates: start: 201808, end: 201809
  31. FARXIGA [Suspect]
     Active Substance: DAPAGLIFLOZIN PROPANEDIOL
     Indication: WEIGHT DECREASED
     Dosage: GENERIC
     Route: 048
     Dates: start: 20180823

REACTIONS (9)
  - Fournier^s gangrene [Unknown]
  - Nerve injury [Unknown]
  - Gangrene [Unknown]
  - Anal incontinence [Unknown]
  - Pain [Unknown]
  - Scar [Unknown]
  - Rectal abscess [Unknown]
  - Necrotising fasciitis [Unknown]
  - Scrotal infection [Unknown]

NARRATIVE: CASE EVENT DATE: 20180908
